FAERS Safety Report 24764057 (Version 1)
Quarter: 2024Q4

REPORT INFORMATION
  Report Type: Report from Study
  Country: MX (occurrence: MX)
  Receive Date: 20241223
  Receipt Date: 20241223
  Transmission Date: 20250115
  Serious: Yes (Death)
  Sender: ABBVIE
  Company Number: MX-ABBVIE-6058007

PATIENT
  Age: 67 Year
  Sex: Male
  Weight: 47 kg

DRUGS (1)
  1. VENCLEXTA [Suspect]
     Active Substance: VENETOCLAX
     Indication: Chronic lymphocytic leukaemia
     Dosage: 400 MILLIGRAM?FORM STRENGTH: 100 MILLIGRAMS
     Route: 048
     Dates: start: 20220914, end: 20241028

REACTIONS (4)
  - Malnutrition [Fatal]
  - Nausea [Unknown]
  - Fatigue [Unknown]
  - Hypophagia [Unknown]
